FAERS Safety Report 6119878-9 (Version None)
Quarter: 2009Q1

REPORT INFORMATION
  Report Type: 
  Country: None (occurrence: None)
  Receive Date: 20090316
  Receipt Date: 20090304
  Transmission Date: 20090719
  Serious: Yes (Death)
  Sender: FDA-Public Use
  Company Number: JP-ROCHE-615626

PATIENT
  Sex: Female
  Weight: 38 kg

DRUGS (16)
  1. TAMIFLU [Suspect]
     Indication: INFLUENZA IMMUNISATION
     Route: 048
     Dates: start: 20090212, end: 20090212
  2. LANSOPRAZOLE [Concomitant]
     Dosage: DRUG REPORTED AS LANSOPRAZOLE-OD.
     Route: 048
     Dates: end: 20090213
  3. CLARUTE [Concomitant]
     Dosage: DRUG REPORTED AS CLARUTE R.
     Route: 048
     Dates: end: 20090213
  4. SPIRONOLACTONE [Concomitant]
     Route: 048
     Dates: end: 20090213
  5. ATENOLOL [Concomitant]
     Dosage: DRUG: MIROBECT
     Route: 048
     Dates: end: 20090213
  6. HYSERENIN [Concomitant]
     Dosage: DOSE FORM: FINE GRANULES.
     Route: 048
     Dates: end: 20090213
  7. SELENICA-R [Concomitant]
     Route: 048
     Dates: start: 20090212, end: 20090212
  8. PURSENNID [Concomitant]
     Route: 048
     Dates: start: 20090212, end: 20090212
  9. LENDORMIN [Concomitant]
     Route: 048
     Dates: start: 20090212, end: 20090212
  10. CEFZON [Concomitant]
     Route: 048
     Dates: start: 20090212, end: 20090213
  11. SERENACE [Concomitant]
     Dosage: ROUTE: INJECTABLE (NOT OTHERWISE SPECIFIED).
     Route: 050
     Dates: start: 20090210, end: 20090210
  12. SERENACE [Concomitant]
     Dosage: ROUTE: INJECTABLE (NOT OTHERWISE SPECIFIED).
     Route: 050
     Dates: start: 20090212, end: 20090212
  13. MAINTATE [Concomitant]
     Route: 048
  14. PARIET [Concomitant]
     Route: 048
  15. HERBESSER [Concomitant]
     Dosage: FORM: ORAL FORMULATION (NOS)
     Route: 048
  16. ALDACTONE [Concomitant]
     Dosage: FORM: ORAL FORMULATION (NOS)
     Route: 048

REACTIONS (5)
  - ACIDOSIS [None]
  - DISSEMINATED INTRAVASCULAR COAGULATION [None]
  - HEPATIC FAILURE [None]
  - HYPERGLYCAEMIA [None]
  - MULTI-ORGAN FAILURE [None]
